FAERS Safety Report 19438712 (Version 1)
Quarter: 2021Q2

REPORT INFORMATION
  Report Type: Spontaneous
  Country: US (occurrence: US)
  Receive Date: 20210618
  Receipt Date: 20210618
  Transmission Date: 20210717
  Serious: Yes (Other)
  Sender: FDA-Public Use
  Company Number: US-JUBILANT PHARMA LTD-2021US000545

PATIENT

DRUGS (1)
  1. DRAXIMAGE MAA [Suspect]
     Active Substance: TECHNETIUM TC-99M ALBUMIN AGGREGATED
     Indication: PULMONARY IMAGING PROCEDURE
     Dosage: 8.26 MCI, SINGLE DOSE
     Dates: start: 20210602, end: 20210602

REACTIONS (4)
  - Anaphylactoid reaction [Unknown]
  - Rash [Unknown]
  - Dyspnoea [Unknown]
  - Hypoxia [Unknown]

NARRATIVE: CASE EVENT DATE: 20210602
